FAERS Safety Report 18040191 (Version 1)
Quarter: 2020Q3

REPORT INFORMATION
  Report Type: Spontaneous
  Country: US (occurrence: US)
  Receive Date: 20200717
  Receipt Date: 20200717
  Transmission Date: 20201103
  Serious: No
  Sender: FDA-Public Use
  Company Number: US-PFIZER INC-2020273893

PATIENT
  Age: 28 Year
  Sex: Female

DRUGS (1)
  1. IBRANCE [Suspect]
     Active Substance: PALBOCICLIB
     Indication: DEDIFFERENTIATED LIPOSARCOMA
     Dosage: 125 MG
     Dates: start: 20200107

REACTIONS (3)
  - Menstruation irregular [Unknown]
  - Off label use [Unknown]
  - Product use in unapproved indication [Unknown]
